FAERS Safety Report 6558198-5 (Version None)
Quarter: 2010Q1

REPORT INFORMATION
  Report Type: 
  Country: None (occurrence: None)
  Receive Date: 20100129
  Receipt Date: 20100119
  Transmission Date: 20100710
  Serious: Yes (Hospitalization)
  Sender: FDA-Public Use
  Company Number: DE-AMGEN-UK378117

PATIENT
  Age: 61 Year

DRUGS (4)
  1. NEULASTA [Suspect]
     Indication: CHEMOTHERAPY
     Route: 058
     Dates: start: 20090716
  2. DOCETAXEL [Suspect]
     Route: 041
     Dates: start: 20090717
  3. EPIRUBICIN [Suspect]
     Route: 041
     Dates: start: 20090717
  4. CYCLOPHOSPHAMIDE [Suspect]
     Route: 041
     Dates: start: 20090717

REACTIONS (1)
  - HAEMOGLOBIN DECREASED [None]
